FAERS Safety Report 4820850-7 (Version None)
Quarter: 2005Q4

REPORT INFORMATION
  Report Type: 
  Country: None (occurrence: None)
  Receive Date: 20051104
  Receipt Date: 20020529
  Transmission Date: 20060501
  Serious: Yes (Hospitalization)
  Sender: FDA-Public Use
  Company Number: NL-ABBOTT-02P-114-0193931-00

PATIENT
  Sex: Female
  Weight: 70 kg

DRUGS (7)
  1. HUMIRA [Suspect]
     Indication: RHEUMATOID ARTHRITIS
     Dosage: 40 MG
     Route: 058
     Dates: start: 20010302, end: 20021112
  2. INSULIN [Concomitant]
     Indication: DIABETES MELLITUS
     Dates: start: 20010201
  3. ACETAMINOPHEN [Concomitant]
     Indication: RHEUMATOID ARTHRITIS
     Route: 048
     Dates: start: 20000823
  4. INSULIN [Concomitant]
     Dates: start: 20010201
  5. INSULIN LISPRO [Concomitant]
     Indication: DIABETES MELLITUS
     Dates: start: 20010201
  6. ROFECOXIB [Concomitant]
     Indication: RHEUMATOID ARTHRITIS
     Route: 048
     Dates: start: 20020124, end: 20020524
  7. ISOPHANE INSULIN [Concomitant]
     Indication: DIABETES MELLITUS
     Route: 048
     Dates: start: 19810201

REACTIONS (3)
  - DENGUE FEVER [None]
  - GASTROENTERITIS [None]
  - PNEUMONIA MYCOPLASMAL [None]
